FAERS Safety Report 8042572-4 (Version None)
Quarter: 2012Q1

REPORT INFORMATION
  Report Type: 
  Country: None (occurrence: None)
  Receive Date: 20120112
  Receipt Date: 20120104
  Transmission Date: 20120608
  Serious: Yes (Other)
  Sender: FDA-Public Use
  Company Number: US-PFIZER INC-2012002684

PATIENT
  Sex: Female

DRUGS (3)
  1. CHANTIX [Suspect]
     Indication: SMOKING CESSATION THERAPY
     Dosage: UNK
  2. CHANTIX [Suspect]
     Dosage: UNK
     Dates: start: 20110101, end: 20110101
  3. CHANTIX [Suspect]
     Dosage: 1 MG, UNK
     Dates: start: 20111201

REACTIONS (5)
  - MALAISE [None]
  - NAUSEA [None]
  - POOR QUALITY SLEEP [None]
  - PNEUMONIA [None]
  - BRONCHITIS [None]
